FAERS Safety Report 9316415 (Version 1)
Quarter: 2013Q2

REPORT INFORMATION
  Report Type: Spontaneous
  Country: US (occurrence: US)
  Receive Date: 20130530
  Receipt Date: 20130530
  Transmission Date: 20140414
  Serious: No
  Sender: FDA-Public Use
  Company Number: US-009507513-1305USA015172

PATIENT
  Age: 27 Year
  Sex: Female

DRUGS (2)
  1. SAPHRIS [Suspect]
     Indication: BIPOLAR DISORDER
     Dosage: RAPID DISSOLVE,10 MG,BID
     Route: 060
  2. COGENTIN [Concomitant]

REACTIONS (1)
  - Muscle twitching [Unknown]
